FAERS Safety Report 6084048-X (Version None)
Quarter: 2009Q1

REPORT INFORMATION
  Report Type: 
  Country: None (occurrence: None)
  Receive Date: 20090219
  Receipt Date: 20090216
  Transmission Date: 20090719
  Serious: Yes (Hospitalization)
  Sender: FDA-Public Use
  Company Number: AU-BRISTOL-MYERS SQUIBB COMPANY-14509848

PATIENT
  Age: 73 Year
  Weight: 70 kg

DRUGS (2)
  1. LIPOSTAT TABS [Suspect]
     Indication: CARDIAC FAILURE ACUTE
     Route: 048
     Dates: start: 20070215, end: 20070217
  2. NEXIUM [Concomitant]
     Dosage: NEXIUM TABS
     Route: 048

REACTIONS (6)
  - CHEST PAIN [None]
  - DIARRHOEA [None]
  - MUSCULAR WEAKNESS [None]
  - MYALGIA [None]
  - MYOCARDIAL INFARCTION [None]
  - NAUSEA [None]
